FAERS Safety Report 7871127-7 (Version None)
Quarter: 2011Q4

REPORT INFORMATION
  Report Type: 
  Country: None (occurrence: None)
  Receive Date: 20111029
  Receipt Date: 20110225
  Transmission Date: 20120403
  Serious: No
  Sender: FDA-Public Use
  Company Number: US-AMGEN-USASP2011010925

PATIENT
  Age: 41 Year
  Sex: Female
  Weight: 108.39 kg

DRUGS (6)
  1. LEVOTHYROXINE SODIUM [Concomitant]
     Dosage: 88 A?G, UNK
  2. PREDNISONE [Concomitant]
     Dosage: 2.5 MG, UNK
  3. NEURONTIN [Concomitant]
     Dosage: 300 MG, UNK
  4. METHOTREXATE [Concomitant]
     Dosage: 2.5 MG, UNK
  5. ENBREL [Suspect]
     Indication: PRODUCT USED FOR UNKNOWN INDICATION
     Dosage: 50 MG, QWK
     Route: 058
  6. FOLIC ACID [Concomitant]
     Dosage: 1 MG, UNK

REACTIONS (1)
  - SINUSITIS [None]
